FAERS Safety Report 4749116-0 (Version None)
Quarter: 2005Q3

REPORT INFORMATION
  Report Type: 
  Country: None (occurrence: None)
  Receive Date: 20050812
  Receipt Date: 20050510
  Transmission Date: 20060218
  Serious: Yes (Other)
  Sender: FDA-Public Use
  Company Number: 396371

PATIENT
  Age: 39 Year
  Sex: Female
  Weight: 95.3 kg

DRUGS (4)
  1. PEGASYS [Suspect]
     Indication: HEPATITIS C
     Dosage: 180 MCG 1 PER WEEK SUBCUTANEOUS
     Route: 058
     Dates: start: 20050131, end: 20050509
  2. COPEGUS [Suspect]
     Indication: HEPATITIS C
     Dosage: 600 MG 2 PER DAY ORAL
     Route: 048
     Dates: start: 20050131, end: 20050509
  3. WELLBUTRIN XL (BUPROPION) [Concomitant]
  4. PROTONIX [Concomitant]

REACTIONS (14)
  - ADVERSE EVENT [None]
  - AMNESIA [None]
  - ARTHRALGIA [None]
  - DEPRESSION [None]
  - FATIGUE [None]
  - HEADACHE [None]
  - HYPERTENSION [None]
  - INSOMNIA [None]
  - IRRITABILITY [None]
  - MYALGIA [None]
  - NERVOUSNESS [None]
  - STOMACH DISCOMFORT [None]
  - SUICIDAL IDEATION [None]
  - TINNITUS [None]
